FAERS Safety Report 22040180 (Version 1)
Quarter: 2023Q1

REPORT INFORMATION
  Report Type: Spontaneous
  Country: NO (occurrence: NO)
  Receive Date: 20230227
  Receipt Date: 20230227
  Transmission Date: 20230418
  Serious: Yes (Life-Threatening, Hospitalization, Other)
  Sender: FDA-Public Use
  Company Number: NO-PFIZER INC-PV202300035657

PATIENT
  Sex: Female

DRUGS (10)
  1. HYDROCORTISONE SODIUM SUCCINATE [Suspect]
     Active Substance: HYDROCORTISONE SODIUM SUCCINATE
     Indication: Glucocorticoid deficiency
     Dosage: 100 MG
     Route: 040
  2. HYDROCORTISONE SODIUM SUCCINATE [Suspect]
     Active Substance: HYDROCORTISONE SODIUM SUCCINATE
     Dosage: 100 MG, NEXT 24 HOURS INFUSION
     Route: 042
  3. NOREPINEPHRINE [Suspect]
     Active Substance: NOREPINEPHRINE
     Indication: Blood pressure measurement
     Dosage: 0.05-0.1 UG/KG/MIN (INFUSION)
  4. RINGER ACETATE [CALCIUM CHLORIDE;MAGNESIUM CHLORIDE;POTASSIUM CHLORIDE [Concomitant]
     Dosage: 15 ML/KG
  5. ELECTROLYTES NOS [Concomitant]
     Active Substance: ELECTROLYTES NOS
     Dosage: 10 ML/KG
  6. ALBUMIN HUMAN [Concomitant]
     Active Substance: ALBUMIN HUMAN
     Dosage: 20 MG/ML
  7. DEXTROSE [Concomitant]
     Active Substance: DEXTROSE
     Dosage: 50 MG/ML
  8. DEXTROSE [Concomitant]
     Active Substance: DEXTROSE
     Dosage: 100 MG/ML
  9. SODIUM CHLORIDE [Concomitant]
     Active Substance: SODIUM CHLORIDE
     Dosage: 140 MMOL/L
  10. POTASSIUM CHLORIDE [Concomitant]
     Active Substance: POTASSIUM CHLORIDE
     Dosage: 10 MMOL/L

REACTIONS (2)
  - Renal failure [Recovering/Resolving]
  - Laboratory test abnormal [Recovered/Resolved]
